FAERS Safety Report 9328828 (Version 3)
Quarter: 2015Q2

REPORT INFORMATION
  Report Type: Spontaneous
  Country: US (occurrence: US)
  Receive Date: 20130604
  Receipt Date: 20150604
  Transmission Date: 20150821
  Serious: Yes (Other)
  Sender: FDA-Public Use
  Company Number: US-SANOFI-AVENTIS-2013SA016516

PATIENT
  Age: 48 Year
  Sex: Female

DRUGS (7)
  1. LANTUS SOLOSTAR [Suspect]
     Active Substance: INSULIN GLARGINE
     Indication: TYPE 1 DIABETES MELLITUS
     Dosage: FREQUENCY - MORNING DOSE:26 UNIT(S)
     Route: 051
  2. SOLOSTAR [Concomitant]
     Active Substance: DEVICE
     Indication: TYPE 1 DIABETES MELLITUS
  3. SOLOSTAR [Concomitant]
     Active Substance: DEVICE
     Indication: TYPE 1 DIABETES MELLITUS
  4. HUMALOG [Concomitant]
     Active Substance: INSULIN LISPRO
  5. LANTUS SOLOSTAR [Suspect]
     Active Substance: INSULIN GLARGINE
     Indication: TYPE 1 DIABETES MELLITUS
     Dosage: FREQUENCY - MORNING DOSE:26 UNIT(S)
     Route: 051
  6. SOLOSTAR [Concomitant]
     Active Substance: DEVICE
     Indication: TYPE 1 DIABETES MELLITUS
  7. LANTUS SOLOSTAR [Suspect]
     Active Substance: INSULIN GLARGINE
     Indication: TYPE 1 DIABETES MELLITUS
     Dosage: FREQUENCY - MORNING DOSE:26 UNIT(S)
     Route: 051

REACTIONS (6)
  - Hyperglycaemia [Recovered/Resolved]
  - Hypoglycaemia [Recovered/Resolved]
  - Drug ineffective [Recovered/Resolved]
  - Blood glucose decreased [Recovered/Resolved]
  - Weight decreased [Recovered/Resolved]
  - Blood glucose increased [Recovered/Resolved]
